FAERS Safety Report 9508298 (Version 1)
Quarter: 2013Q3

REPORT INFORMATION
  Report Type: Spontaneous
  Country: US (occurrence: US)
  Receive Date: 20130909
  Receipt Date: 20130909
  Transmission Date: 20140515
  Serious: No
  Sender: FDA-Public Use
  Company Number: US-PFIZER INC-2013257486

PATIENT
  Age: 89 Year
  Sex: Female
  Weight: 72.56 kg

DRUGS (3)
  1. LYRICA [Suspect]
     Indication: IRRITABLE BOWEL SYNDROME
     Dosage: 300 MG, 1X/DAY
     Dates: start: 201308
  2. LYRICA [Suspect]
     Indication: PAIN
  3. ACETAMINOPHEN W/OXYCODONE [Concomitant]
     Dosage: 5/325 MG, 2X/DAY

REACTIONS (11)
  - Off label use [Unknown]
  - Dizziness [Not Recovered/Not Resolved]
  - Vision blurred [Not Recovered/Not Resolved]
  - Headache [Not Recovered/Not Resolved]
  - Balance disorder [Not Recovered/Not Resolved]
  - Hypersomnia [Unknown]
  - Drug effect incomplete [Unknown]
  - Therapeutic response unexpected [Unknown]
  - Somnolence [Not Recovered/Not Resolved]
  - Paraesthesia [Not Recovered/Not Resolved]
  - Gait disturbance [Not Recovered/Not Resolved]
